FAERS Safety Report 9751479 (Version 1)
Quarter: 2013Q4

REPORT INFORMATION
  Report Type: Spontaneous
  Country: US (occurrence: US)
  Receive Date: 20131212
  Receipt Date: 20131212
  Transmission Date: 20140711
  Serious: Yes (Other)
  Sender: FDA-Public Use
  Company Number: US-NAPPMUNDI-USA-2013-0106159

PATIENT
  Sex: Male

DRUGS (4)
  1. HYDROMORPHONE HCL (SIMILAR TO 19-892) [Suspect]
     Indication: DRUG ABUSE
     Dosage: UNKNOWN
  2. HYDROCODONE [Suspect]
     Indication: DRUG ABUSE
     Dosage: UNKNOWN
  3. COCAINE [Suspect]
     Indication: DRUG ABUSE
     Dosage: UNKNOWN
  4. LIQUID MORPHINE [Suspect]
     Indication: DRUG ABUSE
     Dosage: UNKNOWN

REACTIONS (1)
  - Substance abuse [Unknown]
